FAERS Safety Report 19246538 (Version 1)
Quarter: 2021Q2

REPORT INFORMATION
  Report Type: Report from Study
  Country: US (occurrence: US)
  Receive Date: 20210512
  Receipt Date: 20210512
  Transmission Date: 20210717
  Serious: Yes (Other)
  Sender: FDA-Public Use
  Company Number: US-JAZZ-2017-US-002765

PATIENT
  Sex: Female
  Weight: 54.42 kg

DRUGS (30)
  1. ADRENOL [Concomitant]
  2. DETOX [ATTAPULGITE] [Concomitant]
  3. IRON [Concomitant]
     Active Substance: IRON
  4. MEPRON [Concomitant]
     Active Substance: ATOVAQUONE
  5. N?ACETYL?L?CYSTEINE [Concomitant]
     Active Substance: ACETYLCYSTEINE
  6. SALINE [SODIUM CHLORIDE] [Concomitant]
     Active Substance: SODIUM CHLORIDE
  7. URSODIOL. [Concomitant]
     Active Substance: URSODIOL
  8. XYREM [Suspect]
     Active Substance: SODIUM OXYBATE
     Indication: NARCOLEPSY
     Dosage: 2.25 GRAM, BID
     Route: 048
     Dates: start: 201608, end: 201608
  9. BANDEROL NUTRAMEDIX [Concomitant]
  10. NUVIGIL [Concomitant]
     Active Substance: ARMODAFINIL
  11. MAGNESIUM GLYCINATE [Concomitant]
     Active Substance: MAGNESIUM GLYCINATE
  12. XYREM [Suspect]
     Active Substance: SODIUM OXYBATE
     Dosage: 3.75 GRAM, FIRST DOSE
     Route: 048
     Dates: start: 201609, end: 201702
  13. XYREM [Suspect]
     Active Substance: SODIUM OXYBATE
     Dosage: 3 GRAM, SECOND DOSE
     Route: 048
     Dates: start: 201609, end: 201702
  14. L?GLUTAMINE [GLUTAMIC ACID] [Concomitant]
     Active Substance: GLUTAMIC ACID
  15. VITAMIN B COMPLEX [Concomitant]
     Active Substance: CYANOCOBALAMIN\DEXPANTHENOL\NIACINAMIDE\PYRIDOXINE HYDROCHLORIDE\RIBOFLAVIN 5^-PHOSPHATE SODIUM\THIAMINE HYDROCHLORIDE\VITAMIN B COMPLEX
  16. XYREM [Suspect]
     Active Substance: SODIUM OXYBATE
     Indication: CATAPLEXY
     Dosage: DOSE ADJUSTMENT
     Route: 048
     Dates: start: 201608, end: 201609
  17. BROMELAIN [Concomitant]
     Active Substance: BROMELAINS
  18. CANDIBACTIN AR [Concomitant]
  19. CEFTRIAXONE. [Concomitant]
     Active Substance: CEFTRIAXONE
  20. GLUTATHIONE [Concomitant]
     Active Substance: GLUTATHIONE
  21. NALTREXONE [Concomitant]
     Active Substance: NALTREXONE
  22. STEVIA [STEVIA REBAUDIANA] [Concomitant]
  23. TEA TREE [Concomitant]
     Active Substance: GLYCERIN
  24. NYSTATIN. [Concomitant]
     Active Substance: NYSTATIN
  25. SILVER [Concomitant]
     Active Substance: SILVER
  26. MILK THISTLE [SILYBUM MARIANUM] [Concomitant]
     Active Substance: DIETARY SUPPLEMENT\HERBALS\MILK THISTLE
  27. ZITHROMAX [Concomitant]
     Active Substance: AZITHROMYCIN DIHYDRATE
  28. ASPIRIN [ACETYLSALICYLIC ACID] [Concomitant]
     Active Substance: ASPIRIN
  29. VITAMIN B12 [Concomitant]
     Active Substance: CYANOCOBALAMIN
  30. VITAMIN D3 [Concomitant]
     Active Substance: CHOLECALCIFEROL

REACTIONS (5)
  - Dysphagia [Recovering/Resolving]
  - Nausea [Unknown]
  - Weight decreased [Recovered/Resolved]
  - Neuropathy peripheral [Unknown]
  - Retching [Recovering/Resolving]
